FAERS Safety Report 6668296-3 (Version None)
Quarter: 2010Q2

REPORT INFORMATION
  Report Type: 
  Country: None (occurrence: None)
  Receive Date: 20100405
  Receipt Date: 20100405
  Transmission Date: 20101027
  Serious: No
  Sender: FDA-Public Use
  Company Number: None

PATIENT
  Age: 65 Year
  Sex: Male
  Weight: 99.7 kg

DRUGS (1)
  1. QUETIAPINE [Suspect]
     Dosage: 100 MG HS PO
     Route: 048
     Dates: start: 20080430, end: 20100126

REACTIONS (2)
  - DYSPNOEA [None]
  - DYSTONIA [None]
